FAERS Safety Report 14617005 (Version 2)
Quarter: 2020Q3

REPORT INFORMATION
  Report Type: Spontaneous
  Country: TH (occurrence: TH)
  Receive Date: 20180309
  Receipt Date: 20180313
  Transmission Date: 20201104
  Serious: No
  Sender: FDA-Public Use
  Company Number: PHHY2018TH034269

PATIENT
  Age: 18 Year
  Sex: Female

DRUGS (1)
  1. ZYKADIA [Suspect]
     Active Substance: CERITINIB
     Indication: PRODUCT USED FOR UNKNOWN INDICATION
     Dosage: UNK
     Route: 065
     Dates: start: 20170315

REACTIONS (3)
  - Disease progression [Unknown]
  - Diarrhoea [Unknown]
  - Pulmonary mass [Unknown]

NARRATIVE: CASE EVENT DATE: 20170419
